FAERS Safety Report 6610272-0 (Version None)
Quarter: 2010Q1

REPORT INFORMATION
  Report Type: 
  Country: None (occurrence: None)
  Receive Date: 20100302
  Receipt Date: 20100225
  Transmission Date: 20100710
  Serious: Yes (Other)
  Sender: FDA-Public Use
  Company Number: AU-WYE-G05573510

PATIENT
  Sex: Male

DRUGS (3)
  1. EFFEXOR XR [Suspect]
     Indication: DEPRESSION
  2. CANNABIS [Concomitant]
  3. ALCOHOL [Concomitant]

REACTIONS (6)
  - AGGRESSION [None]
  - ALCOHOL USE [None]
  - DRUG ABUSE [None]
  - ECONOMIC PROBLEM [None]
  - MANIA [None]
  - PERSONALITY CHANGE [None]
